FAERS Safety Report 5797327-8 (Version None)
Quarter: 2008Q2

REPORT INFORMATION
  Report Type: 
  Country: None (occurrence: None)
  Receive Date: 20080627
  Receipt Date: 20080614
  Transmission Date: 20081010
  Serious: Yes (Other)
  Sender: FDA-Public Use
  Company Number: 2008S1009844

PATIENT
  Age: 53 Year
  Sex: Female

DRUGS (3)
  1. NEBIVOLOL HCL [Suspect]
     Indication: HYPERTENSION
     Dosage: ORAL
     Route: 048
     Dates: start: 20080507, end: 20080507
  2. INDAPAMIDE [Concomitant]
  3. AMLODIPINE [Concomitant]

REACTIONS (1)
  - LIP SWELLING [None]
